FAERS Safety Report 9534659 (Version 1)
Quarter: 2013Q2

REPORT INFORMATION
  Report Type: Spontaneous
  Country: FR (occurrence: None)
  Receive Date: 20130403
  Receipt Date: 20130403
  Transmission Date: 20140414
  Serious: Yes (Other)
  Sender: FDA-Public Use
  Company Number: US-2012-10584

PATIENT
  Age: 44 Year
  Sex: Male

DRUGS (6)
  1. BUSULFEX [Suspect]
  2. CYCLOPHOSPHAMIDE (CYCLOPHOSPHAMIDE) [Suspect]
     Indication: ALLOGENIC BONE MARROW TRANSPLANTATION THERAPY
  3. CARMUSTINE (CARMUSTINE) [Concomitant]
  4. ETOPOSIDE PHOSPHATE (ETOPOSIDE PHOSPHATE) [Concomitant]
  5. ARACYTINE (CYTARABINE) [Concomitant]
  6. MELPHALAN [Concomitant]

REACTIONS (1)
  - Blood follicle stimulating hormone increased [None]
